FAERS Safety Report 23451514 (Version 1)
Quarter: 2024Q1

REPORT INFORMATION
  Report Type: Spontaneous
  Country: CN (occurrence: CN)
  Receive Date: 20240129
  Receipt Date: 20240129
  Transmission Date: 20240410
  Serious: Yes (Hospitalization, Other)
  Sender: FDA-Public Use
  Company Number: CN-SA-SAC20240124000740

PATIENT
  Age: 76 Year
  Sex: Female

DRUGS (6)
  1. ENOXAPARIN SODIUM [Suspect]
     Active Substance: ENOXAPARIN SODIUM
     Indication: Chronic kidney disease
     Dosage: 0.4 ML, QD
     Route: 058
     Dates: start: 20231129, end: 20231201
  2. ZYVOX [Suspect]
     Active Substance: LINEZOLID
     Indication: Pneumonia
     Dosage: 300 ML, BID
     Route: 041
     Dates: start: 20231219, end: 20231229
  3. MEROPENEM [Suspect]
     Active Substance: MEROPENEM
     Indication: Pneumonia
     Dosage: 1 G, BID
     Route: 041
     Dates: start: 20231226, end: 20231228
  4. PANTOPRAZOLE SODIUM [Concomitant]
     Active Substance: PANTOPRAZOLE SODIUM
     Indication: Chronic kidney disease
     Dosage: 40 MG, QD
     Route: 048
     Dates: start: 20231226, end: 20231228
  5. BERAPROST SODIUM [Concomitant]
     Active Substance: BERAPROST SODIUM
     Indication: Venous thrombosis
     Dosage: 40 UG, TID
     Route: 048
     Dates: start: 20231226, end: 20240102
  6. METHYLCOBALAMIN [Concomitant]
     Active Substance: METHYLCOBALAMIN
     Indication: Nutritional supplementation
     Dosage: 2.0 ML, QD
     Route: 041
     Dates: start: 20231226, end: 20240103

REACTIONS (2)
  - Pancytopenia [Unknown]
  - Platelet count decreased [Unknown]

NARRATIVE: CASE EVENT DATE: 20231229
